FAERS Safety Report 14010032 (Version 1)
Quarter: 2017Q3

REPORT INFORMATION
  Report Type: Report from Study
  Country: None (occurrence: US)
  Receive Date: 20170925
  Receipt Date: 20170925
  Transmission Date: 20171128
  Serious: Yes (Hospitalization, Other)
  Sender: FDA-Public Use
  Company Number: US-ABBVIE-17K-163-2024136-00

PATIENT
  Age: 67 Year
  Sex: Female
  Weight: 44.95 kg

DRUGS (2)
  1. HUMIRA [Suspect]
     Active Substance: ADALIMUMAB
     Indication: CROHN^S DISEASE
     Route: 058
     Dates: start: 201601, end: 201705
  2. TYLENOL [Concomitant]
     Active Substance: ACETAMINOPHEN
     Indication: HEADACHE

REACTIONS (8)
  - Abdominal mass [Recovered/Resolved]
  - Peripheral swelling [Recovered/Resolved]
  - Appendicectomy [Unknown]
  - Gastrointestinal infection [Unknown]
  - Kidney enlargement [Recovered/Resolved]
  - Crohn^s disease [Recovered/Resolved]
  - Gastrointestinal infection [Recovered/Resolved]
  - Abdominal pain [Recovered/Resolved]

NARRATIVE: CASE EVENT DATE: 201705
